FAERS Safety Report 11420758 (Version 6)
Quarter: 2015Q4

REPORT INFORMATION
  Report Type: Spontaneous
  Country: JP (occurrence: JP)
  Receive Date: 20150826
  Receipt Date: 20151019
  Transmission Date: 20160304
  Serious: Yes (Death, Life-Threatening, Hospitalization, Other)
  Sender: FDA-Public Use
  Company Number: JP-ELI_LILLY_AND_COMPANY-JP201508006286

PATIENT
  Age: 73 Year
  Sex: Male
  Weight: 44 kg

DRUGS (10)
  1. MAGMITT [Concomitant]
     Active Substance: MAGNESIUM OXIDE
     Indication: CONSTIPATION
     Dosage: 660 MG, BID
     Route: 048
     Dates: start: 20150505, end: 20150812
  2. PRIMPERAN [Concomitant]
     Active Substance: METOCLOPRAMIDE HYDROCHLORIDE
     Indication: NAUSEA
     Dosage: 5 MG, BID
     Route: 048
     Dates: start: 20150714, end: 20150812
  3. SANDOSTATIN [Concomitant]
     Active Substance: OCTREOTIDE ACETATE
     Indication: ILEUS
     Dosage: 300 UG, QD
     Route: 042
     Dates: start: 20150718, end: 20150804
  4. BLADDERON [Concomitant]
     Active Substance: FLAVOXATE
     Indication: POLLAKIURIA
     Dosage: 200 MG, EACH EVENING
     Route: 048
     Dates: start: 20150623, end: 20150803
  5. RINDERON                           /00008501/ [Concomitant]
     Active Substance: BETAMETHASONE
     Dosage: 4 MG, QD
     Route: 042
  6. BFLUID [Concomitant]
     Active Substance: AMINO ACIDS\DEXTROSE\ELECTROLYTES NOS\VITAMINS
     Indication: DECREASED APPETITE
     Dosage: 1000 ML, DAILY
     Route: 042
     Dates: start: 20150717, end: 20150902
  7. CYRAMZA [Suspect]
     Active Substance: RAMUCIRUMAB
     Indication: GASTRIC CANCER STAGE IV
     Dosage: 300 MG, OTHER
     Route: 042
     Dates: start: 20150731, end: 20150731
  8. XARELTO [Suspect]
     Active Substance: RIVAROXABAN
     Indication: THROMBOSIS PROPHYLAXIS
     Dosage: 10 MG, QD
     Route: 048
     Dates: start: 20150502, end: 20150806
  9. XARELTO [Suspect]
     Active Substance: RIVAROXABAN
     Dosage: UNK
     Route: 048
     Dates: start: 20150808
  10. RECOMODULIN [Suspect]
     Active Substance: THROMBOMODULIN ALFA
     Indication: DISSEMINATED INTRAVASCULAR COAGULATION
     Dosage: 12800 IU, DAILY
     Route: 042
     Dates: start: 20150805, end: 20150807

REACTIONS (5)
  - Platelet count decreased [Not Recovered/Not Resolved]
  - Cerebral haemorrhage [Not Recovered/Not Resolved]
  - Sepsis [Recovered/Resolved]
  - Disseminated intravascular coagulation [Unknown]
  - Malignant neoplasm progression [Fatal]

NARRATIVE: CASE EVENT DATE: 201508
